FAERS Safety Report 5901772-7 (Version None)
Quarter: 2008Q3

REPORT INFORMATION
  Report Type: 
  Country: None (occurrence: None)
  Receive Date: 20080929
  Receipt Date: 20080917
  Transmission Date: 20090109
  Serious: Yes (Life-Threatening, Hospitalization)
  Sender: FDA-Public Use
  Company Number: ZA-TYCO HEALTHCARE/MALLINCKRODT-T200801515

PATIENT

DRUGS (1)
  1. OPTIRAY 320 [Suspect]
     Indication: ARTERIOGRAM CORONARY
     Dosage: 200 ML, SINGLE
     Route: 013
     Dates: start: 20080909, end: 20080909

REACTIONS (4)
  - BRONCHOSPASM [None]
  - NAUSEA [None]
  - RASH [None]
  - VOMITING [None]
